FAERS Safety Report 8809778 (Version 1)
Quarter: 2012Q4

REPORT INFORMATION
  Report Type: 
  Country: US (occurrence: US)
  Receive Date: 20120926
  Receipt Date: 20120926
  Transmission Date: 20130627
  Serious: Yes (Other)
  Sender: FDA-Public Use
  Company Number: CHPA2012US020194

PATIENT
  Age: 72 Year
  Sex: Female

DRUGS (3)
  1. VOLTAREN GEL [Suspect]
     Indication: BACK DISORDER
     Dosage: UNK, 4 times a day/everyday or PRN
     Route: 061
     Dates: start: 2008
  2. BETA BLOCKING AGENTS [Concomitant]
  3. DRUG THERAPY NOS [Concomitant]

REACTIONS (5)
  - Cardiac disorder [Unknown]
  - Fall [Unknown]
  - Off label use [Unknown]
  - Therapeutic response unexpected [Unknown]
  - Drug administered at inappropriate site [Unknown]
